FAERS Safety Report 7792555-4 (Version None)
Quarter: 2011Q4

REPORT INFORMATION
  Report Type: 
  Country: None (occurrence: None)
  Receive Date: 20111003
  Receipt Date: 20110923
  Transmission Date: 20120403
  Serious: Yes (Hospitalization)
  Sender: FDA-Public Use
  Company Number: US-ASTRAZENECA-2010SE52781

PATIENT
  Age: 63 Year
  Sex: Male

DRUGS (2)
  1. ATACAND [Suspect]
     Route: 048
  2. ATACAND [Suspect]
     Route: 048

REACTIONS (7)
  - URINARY RETENTION [None]
  - HERNIA OBSTRUCTIVE [None]
  - OEDEMA PERIPHERAL [None]
  - JOINT SWELLING [None]
  - THERAPY CESSATION [None]
  - INTESTINAL OBSTRUCTION [None]
  - HYPERTENSION [None]
